FAERS Safety Report 13716565 (Version 9)
Quarter: 2022Q2

REPORT INFORMATION
  Report Type: Report from Study
  Country: DO (occurrence: DO)
  Receive Date: 20170705
  Receipt Date: 20220617
  Transmission Date: 20220721
  Serious: Yes (Other)
  Sender: FDA-Public Use
  Company Number: PHHY2017DO061620

PATIENT
  Age: 64 Year
  Sex: Male

DRUGS (3)
  1. GILENYA [Suspect]
     Active Substance: FINGOLIMOD HYDROCHLORIDE
     Indication: Primary progressive multiple sclerosis
     Dosage: 0.5 MG
     Route: 065
  2. GILENYA [Suspect]
     Active Substance: FINGOLIMOD HYDROCHLORIDE
     Indication: Relapsing-remitting multiple sclerosis
     Dosage: 0.5 MG, QD (VIA MOUTH)
     Route: 048
     Dates: start: 20170330
  3. GILENYA [Suspect]
     Active Substance: FINGOLIMOD HYDROCHLORIDE
     Dosage: 0.5 MG, QD
     Route: 048
     Dates: start: 20220203

REACTIONS (27)
  - Urinary tract obstruction [Unknown]
  - Loss of consciousness [Unknown]
  - Hallucination [Unknown]
  - Ill-defined disorder [Unknown]
  - Multiple sclerosis relapse [Not Recovered/Not Resolved]
  - Bone marrow disorder [Not Recovered/Not Resolved]
  - Optic nerve injury [Unknown]
  - Visual impairment [Unknown]
  - Mobility decreased [Unknown]
  - Bacterial infection [Unknown]
  - Feeling abnormal [Recovering/Resolving]
  - Disorientation [Unknown]
  - Constipation [Unknown]
  - Asthenia [Unknown]
  - Balance disorder [Unknown]
  - Malaise [Unknown]
  - Gait disturbance [Recovering/Resolving]
  - Fall [Unknown]
  - Tibia fracture [Unknown]
  - Movement disorder [Unknown]
  - Pain [Unknown]
  - Fibula fracture [Unknown]
  - Concomitant disease aggravated [Unknown]
  - Chromaturia [Unknown]
  - Abdominal pain [Unknown]
  - Fatigue [Recovered/Resolved]
  - Product use in unapproved indication [Unknown]

NARRATIVE: CASE EVENT DATE: 20210315
